FAERS Safety Report 7902180-X (Version None)
Quarter: 2011Q4

REPORT INFORMATION
  Report Type: 
  Country: None (occurrence: None)
  Receive Date: 20111108
  Receipt Date: 20111031
  Transmission Date: 20120403
  Serious: Yes (Hospitalization)
  Sender: FDA-Public Use
  Company Number: JP-ABBOTT-11P-087-0866946-00

PATIENT
  Age: 96 Year
  Sex: Female

DRUGS (3)
  1. CLARITHROMYCIN [Suspect]
     Indication: NASOPHARYNGITIS
  2. DONEPEZIL HYDROCHLORIDE [Interacting]
  3. DONEPEZIL HYDROCHLORIDE [Interacting]
     Indication: DEMENTIA ALZHEIMER'S TYPE

REACTIONS (2)
  - DRUG LEVEL INCREASED [None]
  - DRUG INTERACTION [None]
